FAERS Safety Report 17807828 (Version 1)
Quarter: 2020Q2

REPORT INFORMATION
  Report Type: Spontaneous
  Country: US (occurrence: US)
  Receive Date: 20200520
  Receipt Date: 20200520
  Transmission Date: 20200714
  Serious: Yes (Other)
  Sender: FDA-Public Use
  Company Number: US-JNJFOC-20200522435

PATIENT
  Sex: Female

DRUGS (9)
  1. SPRAVATO [Suspect]
     Active Substance: ESKETAMINE
     Dates: start: 20200310, end: 20200310
  2. SPRAVATO [Suspect]
     Active Substance: ESKETAMINE
     Dates: start: 20200317, end: 20200317
  3. SPRAVATO [Suspect]
     Active Substance: ESKETAMINE
     Dates: start: 20200221, end: 20200221
  4. SPRAVATO [Suspect]
     Active Substance: ESKETAMINE
     Dates: start: 20200214, end: 20200214
  5. SPRAVATO [Suspect]
     Active Substance: ESKETAMINE
     Dates: start: 20200225, end: 20200225
  6. SPRAVATO [Suspect]
     Active Substance: ESKETAMINE
     Indication: DEPRESSION
  7. SPRAVATO [Suspect]
     Active Substance: ESKETAMINE
     Dates: start: 20200303, end: 20200303
  8. SPRAVATO [Suspect]
     Active Substance: ESKETAMINE
     Dates: start: 20200403, end: 20200403
  9. SPRAVATO [Suspect]
     Active Substance: ESKETAMINE
     Dates: start: 20200211, end: 20200211

REACTIONS (9)
  - Feeling abnormal [Unknown]
  - Nausea [Unknown]
  - Panic attack [Unknown]
  - Feeling drunk [Unknown]
  - Chest discomfort [Unknown]
  - Palpitations [Unknown]
  - Vomiting [Unknown]
  - Heart rate increased [Unknown]
  - Sedation [Unknown]
